FAERS Safety Report 24210647 (Version 1)
Quarter: 2024Q3

REPORT INFORMATION
  Report Type: Spontaneous
  Country: JP (occurrence: JP)
  Receive Date: 20240814
  Receipt Date: 20240814
  Transmission Date: 20241016
  Serious: Yes (Hospitalization)
  Sender: BAYER
  Company Number: JP-BAYER-2024A112094

PATIENT
  Age: 66 Year

DRUGS (1)
  1. STIVARGA [Suspect]
     Active Substance: REGORAFENIB MONOHYDRATE
     Dosage: UNK
     Route: 048
     Dates: end: 20240719

REACTIONS (1)
  - Cholecystitis acute [None]

NARRATIVE: CASE EVENT DATE: 20240802
